FAERS Safety Report 23993428 (Version 2)
Quarter: 2024Q3

REPORT INFORMATION
  Report Type: Spontaneous
  Country: US (occurrence: US)
  Receive Date: 20240620
  Receipt Date: 20240801
  Transmission Date: 20241017
  Serious: No
  Sender: JOHNSON AND JOHNSON
  Company Number: US-JNJFOC-20240642353

PATIENT
  Age: 66 Year
  Sex: Female

DRUGS (31)
  1. TREMFYA [Suspect]
     Active Substance: GUSELKUMAB
     Indication: Psoriasis
     Route: 058
     Dates: start: 20230208
  2. PROGESTERONE [Concomitant]
     Active Substance: PROGESTERONE
  3. LEVOTHYROXINE [Concomitant]
     Active Substance: LEVOTHYROXINE\LEVOTHYROXINE SODIUM
     Dosage: 75MCG
  4. FLUBLOK QUADRIVALENT NOS [Concomitant]
     Active Substance: INFLUENZA VIRUS VACCINE
  5. NYSTOP [Concomitant]
     Active Substance: NYSTATIN
  6. CEFDINIR [Concomitant]
     Active Substance: CEFDINIR
  7. BETAMETHASONI VALERAS [Concomitant]
  8. LEVOTHYROXINE [Concomitant]
     Active Substance: LEVOTHYROXINE\LEVOTHYROXINE SODIUM
  9. AZITHROMYCIN [Concomitant]
     Active Substance: AZITHROMYCIN
     Dosage: 250MG
  10. OMEPRAZOLE [Concomitant]
     Active Substance: OMEPRAZOLE
     Dosage: 40MG
  11. BIVA [Concomitant]
  12. SOOLANTRA [Concomitant]
     Active Substance: IVERMECTIN
  13. ELECTROLYTE SOLUTIONS [ELECTROLYTES NOS] [Concomitant]
  14. HYDROCORTISONE [Concomitant]
     Active Substance: HYDROCORTISONE\HYDROCORTISONE ACETATE
  15. MELOXICAM [Concomitant]
     Active Substance: MELOXICAM
     Dosage: 7.5MG
  16. ALBUTEROL [Concomitant]
     Active Substance: ALBUTEROL
  17. BUPROPION HYDROCHLORIDE [Concomitant]
     Active Substance: BUPROPION HYDROCHLORIDE
  18. ANUCORT-HC [Concomitant]
     Active Substance: HYDROCORTISONE ACETATE
  19. ALBUTEROL [Concomitant]
     Active Substance: ALBUTEROL
  20. MELOXICAM [Concomitant]
     Active Substance: MELOXICAM
  21. PREDNISOLONE [Concomitant]
     Active Substance: PREDNISOLONE
  22. POLYETHYLENE GLYCOL 3350 [Concomitant]
     Active Substance: POLYETHYLENE GLYCOL 3350
  23. PFIZER-BIONTECH COVID-19 VACCINE [Concomitant]
     Active Substance: TOZINAMERAN
  24. NITROFURANTOIN [Concomitant]
     Active Substance: NITROFURANTOIN
  25. VALACYCLOVIR [Concomitant]
     Active Substance: VALACYCLOVIR HYDROCHLORIDE
  26. CYCLOBENZAPRINE [Concomitant]
     Active Substance: CYCLOBENZAPRINE
  27. TRETINOIN [Concomitant]
     Active Substance: TRETINOIN
  28. OMEPRAZOLE [Concomitant]
     Active Substance: OMEPRAZOLE
  29. TALTZ [Concomitant]
     Active Substance: IXEKIZUMAB
  30. EUTHYROX [Concomitant]
     Active Substance: LEVOTHYROXINE SODIUM
  31. AZITHROMYCIN [Concomitant]
     Active Substance: AZITHROMYCIN

REACTIONS (2)
  - Pain [Unknown]
  - Psoriasis [Unknown]
